FAERS Safety Report 24677044 (Version 4)
Quarter: 2024Q4

REPORT INFORMATION
  Report Type: Spontaneous
  Country: US (occurrence: US)
  Receive Date: 20241129
  Receipt Date: 20241226
  Transmission Date: 20250115
  Serious: Yes (Hospitalization)
  Sender: AMGEN
  Company Number: US-AMGEN-USASP2024231415

PATIENT
  Sex: Male

DRUGS (2)
  1. IMDELLTRA [Suspect]
     Active Substance: TARLATAMAB-DLLE
     Indication: Product used for unknown indication
     Dosage: 1 MILLIGRAM
     Route: 065
     Dates: start: 20241119, end: 2024
  2. IMDELLTRA [Suspect]
     Active Substance: TARLATAMAB-DLLE
     Dosage: 1 MILLIGRAM, RESTART ALL OVER AGAIN
     Route: 065
     Dates: start: 20241213

REACTIONS (3)
  - Cytokine release syndrome [Unknown]
  - Incontinence [Unknown]
  - Fall [Unknown]

NARRATIVE: CASE EVENT DATE: 20241101
